FAERS Safety Report 5724287-8 (Version None)
Quarter: 2008Q2

REPORT INFORMATION
  Report Type: 
  Country: None (occurrence: None)
  Receive Date: 20080430
  Receipt Date: 20080421
  Transmission Date: 20081010
  Serious: Yes (Hospitalization)
  Sender: FDA-Public Use
  Company Number: AU-PFIZER INC-2006135917

PATIENT
  Sex: Male
  Weight: 150 kg

DRUGS (9)
  1. SU-011,248 [Suspect]
     Indication: RENAL CELL CARCINOMA
     Route: 048
  2. VITAMIN CAP [Concomitant]
  3. ACETAMINOPHEN [Concomitant]
     Dates: start: 20060529
  4. ACETAMINOPHEN [Concomitant]
     Dates: start: 20060621
  5. ENOXAPARIN SODIUM [Concomitant]
     Dates: start: 20060704
  6. ATACAND HCT [Concomitant]
     Dates: start: 20060621
  7. TRAMADOL HCL [Concomitant]
     Dates: start: 20060802
  8. TRITACE [Concomitant]
     Dates: start: 20060906
  9. LIPITOR [Concomitant]
     Dates: start: 20060906

REACTIONS (1)
  - PLEURITIC PAIN [None]
